FAERS Safety Report 8837889 (Version 2)
Quarter: 2014Q2

REPORT INFORMATION
  Report Type: Spontaneous
  Country: US (occurrence: US)
  Receive Date: 20121012
  Receipt Date: 20140509
  Transmission Date: 20141212
  Serious: Yes (Other)
  Sender: FDA-Public Use
  Company Number: US-BAYER-2012-103613

PATIENT
  Age: 39 Year
  Sex: Female

DRUGS (10)
  1. YAZ [Suspect]
     Dosage: UNK
     Dates: start: 20071205, end: 20081109
  2. YASMIN [Suspect]
     Dosage: UNK
     Dates: start: 20071205, end: 20081109
  3. OCELLA [Suspect]
     Dosage: UNK
     Dates: start: 20071205, end: 20081109
  4. BEYAZ [Suspect]
     Dosage: UNK
     Dates: start: 20071205, end: 20081109
  5. GIANVI [Suspect]
     Dosage: UNK
     Dates: start: 20071205, end: 20081109
  6. SAFYRAL [Suspect]
     Dosage: UNK
     Dates: start: 20071205, end: 20081109
  7. ORAL CONTRACEPTIVE NOS [Concomitant]
  8. FLURAZEPAM [Concomitant]
     Indication: INSOMNIA
     Dosage: 15 MG TO 30 MG, AT BEDTIME
     Route: 048
  9. RHINOCORT AQUA [Concomitant]
     Dosage: 32 ?G, INSTILL TWO PUFFS AT BEDTIME
     Route: 045
  10. AVELOX [Concomitant]
     Dosage: 400 MG, UNK
     Route: 048

REACTIONS (3)
  - Deep vein thrombosis [None]
  - Thrombophlebitis superficial [None]
  - Injury [None]
